FAERS Safety Report 23148455 (Version 3)
Quarter: 2023Q4

REPORT INFORMATION
  Report Type: Spontaneous
  Country: CZ (occurrence: CZ)
  Receive Date: 20231106
  Receipt Date: 20231213
  Transmission Date: 20240110
  Serious: Yes (Other)
  Sender: FDA-Public Use
  Company Number: CZ-MYLANLABS-2023M1114551

PATIENT
  Age: 25 Year
  Sex: Male

DRUGS (10)
  1. ARIPIPRAZOLE [Suspect]
     Active Substance: ARIPIPRAZOLE
     Indication: Psychotic disorder
     Dosage: 10 MILLIGRAM, QD
     Route: 065
     Dates: start: 202202
  2. ARIPIPRAZOLE [Suspect]
     Active Substance: ARIPIPRAZOLE
     Indication: Hallucination, auditory
     Dosage: 15 MILLIGRAM, QD
     Route: 065
     Dates: end: 202304
  3. OLANZAPINE [Suspect]
     Active Substance: OLANZAPINE
     Indication: Psychotic disorder
     Dosage: 5 MILLIGRAM, HS (DAILY)
     Route: 065
  4. OLANZAPINE [Suspect]
     Active Substance: OLANZAPINE
     Indication: Hallucination, auditory
     Dosage: 2.5 MILLIGRAM, QD  (DAILY)
     Route: 065
     Dates: start: 202304
  5. RISPERIDONE [Suspect]
     Active Substance: RISPERIDONE
     Indication: Hallucination, auditory
     Dosage: 3 MILLIGRAM, QD
     Route: 065
  6. RISPERIDONE [Suspect]
     Active Substance: RISPERIDONE
     Indication: Psychotic disorder
  7. BREXPIPRAZOLE [Concomitant]
     Active Substance: BREXPIPRAZOLE
     Indication: Psychotic disorder
     Dosage: 2 MG PER DAY
     Route: 065
  8. BREXPIPRAZOLE [Concomitant]
     Active Substance: BREXPIPRAZOLE
     Indication: Hallucination, auditory
  9. CLOZAPINE [Concomitant]
     Active Substance: CLOZAPINE
     Indication: Psychotic disorder
     Dosage: 50 MILLIGRAM, QD ( P.D50 MG P.D)
     Route: 065
     Dates: start: 2021, end: 202202
  10. CLOZAPINE [Concomitant]
     Active Substance: CLOZAPINE
     Indication: Hallucination, auditory

REACTIONS (7)
  - Hallucination, auditory [Recovered/Resolved]
  - Activation syndrome [Recovered/Resolved]
  - Hypersexuality [Recovered/Resolved]
  - Anxiety [Recovered/Resolved]
  - Paranoia [Recovered/Resolved]
  - Drug ineffective [Unknown]
  - Therapeutic product effect incomplete [Unknown]

NARRATIVE: CASE EVENT DATE: 20210101
